FAERS Safety Report 6902602-7 (Version None)
Quarter: 2010Q3

REPORT INFORMATION
  Report Type: 
  Country: None (occurrence: None)
  Receive Date: 20100803
  Receipt Date: 20080606
  Transmission Date: 20110219
  Serious: Yes (Other)
  Sender: FDA-Public Use
  Company Number: US-PFIZER INC-2008049042

PATIENT
  Sex: Female

DRUGS (4)
  1. LYRICA [Suspect]
     Indication: SURGERY
     Dosage: EVERY DAY
     Route: 048
     Dates: start: 20070901
  2. VITAMIN TAB [Concomitant]
  3. ANTIHYPERTENSIVES [Concomitant]
  4. ALL OTHER THERAPEUTIC PRODUCTS [Concomitant]

REACTIONS (5)
  - INSOMNIA [None]
  - JOINT SWELLING [None]
  - NAUSEA [None]
  - SKIN DISORDER [None]
  - WEIGHT INCREASED [None]
